FAERS Safety Report 7485689-5 (Version None)
Quarter: 2011Q2

REPORT INFORMATION
  Report Type: 
  Country: None (occurrence: None)
  Receive Date: 20110517
  Receipt Date: 20100701
  Transmission Date: 20111010
  Serious: No
  Sender: FDA-Public Use
  Company Number: US-PFIZER INC-2010082456

PATIENT

DRUGS (1)
  1. NICOTROL [Suspect]

REACTIONS (1)
  - PRODUCT QUALITY ISSUE [None]
